FAERS Safety Report 22966315 (Version 2)
Quarter: 2023Q4

REPORT INFORMATION
  Report Type: Spontaneous
  Country: US (occurrence: US)
  Receive Date: 20230921
  Receipt Date: 20231009
  Transmission Date: 20240110
  Serious: No
  Sender: FDA-Public Use
  Company Number: US-UPSHER-SMITH LABORATORIES, LLC-2023USL00796

PATIENT
  Sex: Female
  Weight: 53.061 kg

DRUGS (4)
  1. ISOTRETINOIN [Suspect]
     Active Substance: ISOTRETINOIN
     Indication: Acne
     Dosage: 50 MG DAILY IN CONJUNCTION WITH ISOTRETINOIN 30 MG, TAKEN 2X/DAY; ^25 MG BID^
     Route: 048
     Dates: start: 20230501, end: 2023
  2. ISOTRETINOIN [Suspect]
     Active Substance: ISOTRETINOIN
     Dosage: 50 MG DAILY IN CONJUNCTION WITH ISOTRETINOIN 30 MG, TAKEN 2X/DAY; ^25 MG BID^
     Route: 048
     Dates: start: 20230501, end: 2023
  3. ISOTRETINOIN [Suspect]
     Active Substance: ISOTRETINOIN
     Indication: Acne
     Dosage: 50 MG DAILY IN CONJUNCTION WITH ISOTRETINOIN 20 MG, TAKEN TWICE DAILY; ^25 MG BID^
     Route: 048
     Dates: start: 20230501, end: 2023
  4. UNSPECIFIED INGREDIENT [Concomitant]
     Active Substance: UNSPECIFIED INGREDIENT

REACTIONS (1)
  - No adverse event [Unknown]

NARRATIVE: CASE EVENT DATE: 20230101
